FAERS Safety Report 5596820-0 (Version None)
Quarter: 2008Q1

REPORT INFORMATION
  Report Type: 
  Country: None (occurrence: None)
  Receive Date: 20080119
  Receipt Date: 20080109
  Transmission Date: 20080703
  Serious: Yes (Other)
  Sender: FDA-Public Use
  Company Number: AU-PFIZER INC-2008003733

PATIENT
  Age: 29 Year
  Sex: Male

DRUGS (8)
  1. VFEND [Suspect]
     Indication: ASPERGILLOSIS
  2. ZITHROMAX [Concomitant]
  3. PREDNISONE [Concomitant]
  4. SPIRIVA [Concomitant]
  5. FOSAMAX [Concomitant]
  6. CALTRATE [Concomitant]
  7. OSTELIN [Concomitant]
  8. TOBRAMYCIN [Concomitant]

REACTIONS (4)
  - HALLUCINATION [None]
  - PHOTOPHOBIA [None]
  - PHOTOSENSITIVITY REACTION [None]
  - SUNBURN [None]
